FAERS Safety Report 4531531-1 (Version None)
Quarter: 2004Q4

REPORT INFORMATION
  Report Type: 
  Country: None (occurrence: None)
  Receive Date: 20041220
  Receipt Date: 20041207
  Transmission Date: 20050328
  Serious: Yes (Hospitalization)
  Sender: FDA-Public Use
  Company Number: FR-JNJFOC-20040905435

PATIENT
  Age: 54 Year
  Sex: Female

DRUGS (19)
  1. REMICADE [Suspect]
     Dosage: LAST TWO INFUSION GIVEN AT A DOSE OF 300MG
     Route: 042
  2. REMICADE [Suspect]
     Indication: RHEUMATOID ARTHRITIS
     Route: 042
  3. DOLIPRANE [Suspect]
     Indication: DRUG USE FOR UNKNOWN INDICATION
     Route: 049
  4. NEXEN [Suspect]
     Indication: DRUG USE FOR UNKNOWN INDICATION
     Route: 049
  5. NOVATREX [Suspect]
     Indication: RHEUMATOID ARTHRITIS
     Route: 049
  6. PREDNISONE TAB [Concomitant]
  7. ZAMUDOL [Concomitant]
  8. MOPRAL [Concomitant]
  9. CACIT D3 [Concomitant]
  10. CACIT D3 [Concomitant]
  11. TORENTAL [Concomitant]
     Dosage: 400
  12. PERSANTIN INJ [Concomitant]
  13. PRAXILENE [Concomitant]
  14. GLICAZIDE [Concomitant]
  15. FLUDEX [Concomitant]
  16. ZESTORETIC [Concomitant]
  17. ZESTORETIC [Concomitant]
  18. OESCLIM [Concomitant]
  19. ACTONEL [Concomitant]

REACTIONS (4)
  - CYTOLYTIC HEPATITIS [None]
  - HEPATIC ENZYME INCREASED [None]
  - HYPERTRIGLYCERIDAEMIA [None]
  - PYELONEPHRITIS [None]
